FAERS Safety Report 7851876-7 (Version None)
Quarter: 2011Q4

REPORT INFORMATION
  Report Type: 
  Country: None (occurrence: None)
  Receive Date: 20111026
  Receipt Date: 20111017
  Transmission Date: 20120403
  Serious: Yes (Death, Life-Threatening, Hospitalization)
  Sender: FDA-Public Use
  Company Number: PHHO2010US12110

PATIENT
  Sex: Male
  Weight: 123.36 kg

DRUGS (40)
  1. CAPTOPRIL [Concomitant]
  2. METOLAZONE [Concomitant]
  3. BLINDED ALISKIREN [Suspect]
     Dosage: CODE NOT BROKEN
     Route: 048
     Dates: start: 20100518, end: 20100723
  4. BLINDED NO TREATMENT RECEIVED [Suspect]
     Dosage: CODE NOT BROKEN
     Route: 048
     Dates: start: 20100518, end: 20100723
  5. ENALAPRIL MALEATE [Suspect]
     Indication: CARDIAC FAILURE
  6. VITAMIN D [Concomitant]
  7. CRESTOR [Concomitant]
  8. HEPARIN [Concomitant]
  9. ZAROXOLYN [Concomitant]
  10. DEMADEX [Concomitant]
  11. ONDANSETRON HCL [Concomitant]
  12. ISOSORBIDE DINITRATE [Concomitant]
  13. BLINDED NO TREATMENT RECEIVED [Suspect]
     Dosage: NO TREATMENT
     Dates: start: 20100724, end: 20100728
  14. COUMADIN [Concomitant]
  15. ACETAMINOPHEN [Concomitant]
  16. BLINDED ALISKIREN [Suspect]
     Dosage: NO TREATMENT
     Dates: start: 20100724, end: 20100728
  17. AMIODARONE HCL [Concomitant]
  18. FISH OIL [Concomitant]
  19. MUCOMYST [Concomitant]
  20. ASPIRIN [Concomitant]
  21. LASIX [Concomitant]
  22. ALISKIREN [Suspect]
     Indication: CARDIAC FAILURE
  23. CARVEDILOL [Concomitant]
  24. KLOR-CON [Concomitant]
  25. TORSEMIDE [Concomitant]
  26. SPIRONOLACTONE [Concomitant]
  27. HYDRALAZINE HCL [Concomitant]
  28. BLINDED NO TREATMENT RECEIVED [Suspect]
     Dosage: CODE NOT BROKEN
     Route: 048
     Dates: start: 20100729
  29. XYLOCAINE [Concomitant]
  30. SODIUM CHLORIDE INJ [Concomitant]
  31. VITAMIN K TAB [Concomitant]
  32. ENALAPRIL MALEATE [Suspect]
     Dosage: CODE NOT BROKEN
     Route: 048
     Dates: start: 20100518, end: 20100723
  33. ASPIRIN [Concomitant]
  34. ENALAPRIL MALEATE [Suspect]
     Dosage: NO TREATMENT
     Dates: start: 20100724, end: 20100728
  35. BLINDED ALISKIREN [Suspect]
     Dosage: CODE NOT BROKEN
     Route: 048
     Dates: start: 20100729
  36. ENALAPRIL MALEATE [Suspect]
     Dosage: CODE NOT BROKEN
     Route: 048
     Dates: start: 20100729
  37. WARFARIN SODIUM [Concomitant]
  38. NIASPAN [Concomitant]
  39. DIPHENHYDRAMINE HCL [Concomitant]
  40. NOVOLIN R [Concomitant]

REACTIONS (15)
  - CHEST PAIN [None]
  - BLOOD POTASSIUM INCREASED [None]
  - BRONCHOSPASM [None]
  - ACUTE RESPIRATORY FAILURE [None]
  - DISEASE PROGRESSION [None]
  - ATRIAL FIBRILLATION [None]
  - DYSPNOEA [None]
  - CORONARY ARTERY DISEASE [None]
  - BUNDLE BRANCH BLOCK LEFT [None]
  - ATRIAL FLUTTER [None]
  - BLOOD CREATININE INCREASED [None]
  - CARDIAC FAILURE [None]
  - EJECTION FRACTION DECREASED [None]
  - CONDITION AGGRAVATED [None]
  - CONCOMITANT DISEASE PROGRESSION [None]
